FAERS Safety Report 9380119 (Version 1)
Quarter: 2013Q2

REPORT INFORMATION
  Report Type: Spontaneous
  Country: DE (occurrence: None)
  Receive Date: 20130628
  Receipt Date: 20130628
  Transmission Date: 20140414
  Serious: Yes (Hospitalization)
  Sender: FDA-Public Use
  Company Number: 2013GMK006005

PATIENT
  Age: 12 Week
  Sex: Male
  Weight: 5 kg

DRUGS (3)
  1. MONTELUKAST [Suspect]
     Indication: RESPIRATORY SYNCYTIAL VIRUS INFECTION
     Route: 048
     Dates: end: 20130329
  2. FLUTICASONE (FLUTICASONE) [Concomitant]
  3. ZYMAFLUOR D (COLECALCIFEROL, SODIUM FLUORIDE) [Concomitant]

REACTIONS (4)
  - Dermatitis exfoliative [None]
  - Nikolsky^s sign [None]
  - Alopecia [None]
  - Hyperaesthesia [None]
